FAERS Safety Report 13954229 (Version 3)
Quarter: 2017Q4

REPORT INFORMATION
  Report Type: Spontaneous
  Country: US (occurrence: US)
  Receive Date: 20170911
  Receipt Date: 20171115
  Transmission Date: 20180320
  Serious: Yes (Other)
  Sender: FDA-Public Use
  Company Number: US-AMGEN-USASP2017135282

PATIENT
  Age: 83 Year
  Sex: Female
  Weight: 51.7 kg

DRUGS (15)
  1. VITAMIN C [Concomitant]
     Active Substance: ASCORBIC ACID
  2. VITAMIN D [Concomitant]
     Active Substance: CHOLECALCIFEROL
     Dosage: 2000 UNIT, UNK
  3. PROLIA [Suspect]
     Active Substance: DENOSUMAB
     Indication: OSTEOPOROSIS POSTMENOPAUSAL
     Dosage: 60 MG/ML, Q6MO
     Route: 058
     Dates: start: 20151026
  4. REMICADE [Concomitant]
     Active Substance: INFLIXIMAB
     Indication: RHEUMATOID ARTHRITIS
     Dosage: 400 MG, 6- 8 WEEKS
     Dates: start: 2002, end: 20151223
  5. LEFLUNOMIDE. [Concomitant]
     Active Substance: LEFLUNOMIDE
     Indication: RHEUMATOID ARTHRITIS
     Dosage: 20 MG, QD
     Dates: start: 201510, end: 201705
  6. OMEPRAZOLE. [Concomitant]
     Active Substance: OMEPRAZOLE
     Dosage: 20 MG, QD AS NEEDED
     Route: 048
  7. PROLIA [Suspect]
     Active Substance: DENOSUMAB
     Dosage: UNK
     Route: 058
  8. FISH OIL [Concomitant]
     Active Substance: FISH OIL
     Dosage: 1-2 QD
  9. MIRALAX [Concomitant]
     Active Substance: POLYETHYLENE GLYCOL 3350
  10. TRAZODONE HYDROCHLORIDE. [Concomitant]
     Active Substance: TRAZODONE HYDROCHLORIDE
     Dosage: 50 MG, QHS
     Route: 048
  11. VITAMIN D3 [Concomitant]
     Active Substance: CHOLECALCIFEROL
     Dosage: 2000 UNK, QD
  12. LISINOPRIL. [Concomitant]
     Active Substance: LISINOPRIL
     Dosage: 20 MG, QD
     Route: 048
  13. CALCIUM [Concomitant]
     Active Substance: CALCIUM
     Dosage: 500 MG, QD
  14. MAGNESIUM [Concomitant]
     Active Substance: MAGNESIUM
     Dosage: 650 MG, QD 400 MG AM AND 250MG PM
  15. CAL-MAG [Concomitant]
     Dosage: 1-2 QD

REACTIONS (14)
  - Paraesthesia [Unknown]
  - Bone pain [Unknown]
  - Hypoaesthesia [Unknown]
  - Arthropathy [Unknown]
  - Diarrhoea [Unknown]
  - Synovitis [Unknown]
  - Swelling [Unknown]
  - Eczema [Unknown]
  - Endodontic procedure [Unknown]
  - Abscess [Unknown]
  - Muscle spasms [Unknown]
  - Osteonecrosis of jaw [Not Recovered/Not Resolved]
  - Hand deformity [Unknown]
  - Cystitis [Unknown]

NARRATIVE: CASE EVENT DATE: 2017
